FAERS Safety Report 17760235 (Version 1)
Quarter: 2020Q2

REPORT INFORMATION
  Report Type: Report from Study
  Country: US (occurrence: US)
  Receive Date: 20200508
  Receipt Date: 20200508
  Transmission Date: 20200714
  Serious: Yes (Other)
  Sender: FDA-Public Use
  Company Number: US-GLAXOSMITHKLINE-2019-TSO03009-US

PATIENT
  Sex: Female

DRUGS (4)
  1. NIRAPARIB [Suspect]
     Active Substance: NIRAPARIB
     Dosage: 200 MG, PM WITH WATER
     Route: 048
  2. NIRAPARIB [Suspect]
     Active Substance: NIRAPARIB
     Dosage: 200 MG, QD
  3. NIRAPARIB [Suspect]
     Active Substance: NIRAPARIB
     Indication: FALLOPIAN TUBE CANCER
     Dosage: 200 MG, PM WITH WATER
     Route: 048
     Dates: start: 20190820
  4. NIRAPARIB [Suspect]
     Active Substance: NIRAPARIB
     Dosage: 200 MG, PM WITH WATER
     Route: 048

REACTIONS (12)
  - Abdominal pain [Unknown]
  - Vomiting [Unknown]
  - Off label use [Unknown]
  - Colon cancer recurrent [Unknown]
  - Upper respiratory tract infection [Unknown]
  - Cough [Unknown]
  - Sleep disorder [Unknown]
  - Anaemia [Recovered/Resolved]
  - Colon cancer [Not Recovered/Not Resolved]
  - Weight decreased [Recovering/Resolving]
  - Fatigue [Not Recovered/Not Resolved]
  - Constipation [Recovering/Resolving]
